FAERS Safety Report 24768044 (Version 2)
Quarter: 2024Q4

REPORT INFORMATION
  Report Type: Report from Study
  Country: BE (occurrence: BE)
  Receive Date: 20241223
  Receipt Date: 20241230
  Transmission Date: 20250114
  Serious: Yes (Hospitalization)
  Sender: MERCK
  Company Number: BE-009507513-2412BEL007909

PATIENT
  Age: 68 Year
  Sex: Female
  Weight: 50.6 kg

DRUGS (4)
  1. SOTATERCEPT [Suspect]
     Active Substance: SOTATERCEPT
     Indication: Pulmonary arterial hypertension
     Dosage: UNK, EVERY 3 WEEKS
     Route: 058
     Dates: start: 20240917
  2. VELETRI [Concomitant]
     Active Substance: EPOPROSTENOL
     Indication: Pulmonary arterial hypertension
     Dosage: 20 NG/KG/MIN, CONTINUOUS
     Route: 042
     Dates: start: 20231222
  3. EDOXABAN TOSYLATE [Concomitant]
     Active Substance: EDOXABAN TOSYLATE
     Indication: Atrial fibrillation
     Dosage: 30 MILLIGRAM
     Route: 048
     Dates: start: 20240625, end: 20241220
  4. ASCORBIC ACID\FERROUS SULFATE [Concomitant]
     Active Substance: ASCORBIC ACID\FERROUS SULFATE
     Dosage: 525 MILLIGRAM; INDICATION: FERRIPRIVIA
     Route: 048
     Dates: start: 20230929

REACTIONS (4)
  - Gastrointestinal haemorrhage [Unknown]
  - Cardiac failure [Unknown]
  - Fatigue [Unknown]
  - Dyspnoea [Unknown]

NARRATIVE: CASE EVENT DATE: 20241219
